FAERS Safety Report 21099081 (Version 1)
Quarter: 2022Q3

REPORT INFORMATION
  Report Type: Spontaneous
  Country: US (occurrence: None)
  Receive Date: 20220718
  Receipt Date: 20220718
  Transmission Date: 20221027
  Serious: Yes (unspecified)
  Sender: FDA-Public Use
  Company Number: None

PATIENT
  Age: 14 Year
  Sex: Male
  Weight: 86.18 kg

DRUGS (1)
  1. LATUDA [Suspect]
     Active Substance: LURASIDONE HYDROCHLORIDE
     Indication: Bipolar disorder
     Dosage: FREQUENCY : DAILY;?
     Route: 048
     Dates: start: 20220421, end: 20220715

REACTIONS (2)
  - Swollen tongue [None]
  - Protrusion tongue [None]

NARRATIVE: CASE EVENT DATE: 20220715
